FAERS Safety Report 17684271 (Version 1)
Quarter: 2020Q2

REPORT INFORMATION
  Report Type: Spontaneous
  Country: CH (occurrence: CH)
  Receive Date: 20200420
  Receipt Date: 20200420
  Transmission Date: 20200714
  Serious: Yes (Other)
  Sender: FDA-Public Use
  Company Number: CH-GLAXOSMITHKLINE-CH2020065931

PATIENT
  Sex: Female

DRUGS (1)
  1. NICOTINELL [Suspect]
     Active Substance: NICOTINE
     Indication: PRODUCT USED FOR UNKNOWN INDICATION
     Dosage: UNK, TTS 20 WITH AN ACTIVE SUBSTANCE RELEASE OF 14 MG/24
     Route: 062

REACTIONS (2)
  - Hypoglycaemia [Unknown]
  - Muscle spasms [Unknown]
